FAERS Safety Report 10552519 (Version 2)
Quarter: 2014Q4

REPORT INFORMATION
  Report Type: Spontaneous
  Country: US (occurrence: US)
  Receive Date: 20141029
  Receipt Date: 20141220
  Transmission Date: 20150529
  Serious: Yes (Death, Hospitalization, Other)
  Sender: FDA-Public Use
  Company Number: US-009507513-1410USA015022

PATIENT
  Sex: Female
  Weight: 90.25 kg

DRUGS (1)
  1. JANUMET [Suspect]
     Active Substance: METFORMIN HYDROCHLORIDE\SITAGLIPTIN PHOSPHATE
     Indication: TYPE 2 DIABETES MELLITUS
     Dosage: 50/500  MG, QD
     Route: 048
     Dates: start: 20100408, end: 20100525

REACTIONS (54)
  - Metastases to lung [Unknown]
  - Retroperitoneal lymphadenopathy [Unknown]
  - Pleural effusion [Unknown]
  - Arthralgia [Unknown]
  - Constipation [Unknown]
  - Metastases to liver [Unknown]
  - Death [Fatal]
  - Systemic lupus erythematosus [Unknown]
  - Depression [Unknown]
  - Anxiety [Unknown]
  - Dysphagia [Unknown]
  - Tooth disorder [Unknown]
  - Splenic vein occlusion [Unknown]
  - Headache [Unknown]
  - Hypoglycaemia [Unknown]
  - Nausea [Unknown]
  - Mesenteric vascular occlusion [Unknown]
  - Raynaud^s phenomenon [Unknown]
  - Deep vein thrombosis [Unknown]
  - Pancreatic carcinoma metastatic [Unknown]
  - Metastases to spleen [Unknown]
  - Mesenteric neoplasm [Unknown]
  - Metastases to peritoneum [Unknown]
  - Insomnia [Unknown]
  - Coeliac artery compression syndrome [Unknown]
  - Hypertension [Unknown]
  - Anticoagulation drug level below therapeutic [Unknown]
  - Leukocytosis [Unknown]
  - Abdominal pain [Unknown]
  - Loss of consciousness [Unknown]
  - Gastrooesophageal reflux disease [Unknown]
  - Spinal osteoarthritis [Unknown]
  - Nocturia [Unknown]
  - Dizziness [Unknown]
  - Blood glucose abnormal [Unknown]
  - Sinus disorder [Unknown]
  - Gingival disorder [Unknown]
  - Treatment noncompliance [Unknown]
  - Diabetes mellitus inadequate control [Unknown]
  - Nausea [Unknown]
  - Abdominal pain [Not Recovered/Not Resolved]
  - Asthma [Unknown]
  - Chest pain [Unknown]
  - Gait disturbance [Unknown]
  - Poor dental condition [Unknown]
  - Oedema peripheral [Unknown]
  - Constipation [Unknown]
  - Inappropriate schedule of drug administration [Unknown]
  - Urinary tract infection [Unknown]
  - Hiatus hernia [Unknown]
  - Tremor [Unknown]
  - Hydronephrosis [Unknown]
  - Nausea [Unknown]
  - Drug ineffective [Unknown]

NARRATIVE: CASE EVENT DATE: 20100408
